FAERS Safety Report 7921512-X (Version None)
Quarter: 2011Q4

REPORT INFORMATION
  Report Type: 
  Country: None (occurrence: None)
  Receive Date: 20111117
  Receipt Date: 20110325
  Transmission Date: 20120403
  Serious: No
  Sender: FDA-Public Use
  Company Number: US-MYLANLABS-2011S1006332

PATIENT
  Age: 62 Year
  Sex: Female

DRUGS (4)
  1. TRIAMTERENE AND HYDROCHLOROTHIAZIDE [Suspect]
     Dates: start: 20110301
  2. TRIAMTERENE AND HYDROCHLOROTHIAZIDE [Suspect]
     Indication: HYPERTENSION
     Dates: start: 20110311, end: 20110301
  3. TRIAMTERENE AND HYDROCHLOROTHIAZIDE [Suspect]
     Dates: start: 20110311, end: 20110301
  4. TRIAMTERENE AND HYDROCHLOROTHIAZIDE [Suspect]
     Dates: start: 20110301

REACTIONS (5)
  - VERTIGO [None]
  - DYSGEUSIA [None]
  - NAUSEA [None]
  - DIZZINESS [None]
  - DRY MOUTH [None]
